FAERS Safety Report 9322487 (Version 1)
Quarter: 2013Q2

REPORT INFORMATION
  Report Type: Spontaneous
  Country: GB (occurrence: GB)
  Receive Date: 20130531
  Receipt Date: 20130531
  Transmission Date: 20140414
  Serious: Yes (Other)
  Sender: FDA-Public Use
  Company Number: GB-MYLANLABS-2013S1011059

PATIENT
  Sex: Male

DRUGS (6)
  1. GABAPENTIN [Suspect]
     Indication: CHEST PAIN
  2. GABAPENTIN [Suspect]
     Indication: CONVULSION
  3. GABAPENTIN [Suspect]
     Indication: CHEST PAIN
  4. GABAPENTIN [Suspect]
     Indication: CONVULSION
  5. GABAPENTIN [Suspect]
     Indication: CHEST PAIN
  6. GABAPENTIN [Suspect]
     Indication: CONVULSION

REACTIONS (4)
  - Balance disorder [Unknown]
  - Disturbance in attention [Unknown]
  - Feeling abnormal [Unknown]
  - Muscle spasms [Unknown]
